FAERS Safety Report 14411482 (Version 2)
Quarter: 2018Q1

REPORT INFORMATION
  Report Type: Spontaneous
  Country: US (occurrence: US)
  Receive Date: 20180119
  Receipt Date: 20180307
  Transmission Date: 20180509
  Serious: No
  Sender: FDA-Public Use
  Company Number: US-LEXICON PHARMACEUTICALS, INC-17-1606-01344

PATIENT
  Sex: Male

DRUGS (13)
  1. PRESERVISION AREDS [Concomitant]
     Active Substance: MINERALS\VITAMINS
  2. TELOTRISTAT ETHYL [Suspect]
     Active Substance: TELOTRISTAT ETHYL
  3. FISH OIL [Concomitant]
     Active Substance: FISH OIL
  4. TELOTRISTAT ETHYL [Suspect]
     Active Substance: TELOTRISTAT ETHYL
     Indication: CARCINOID TUMOUR OF THE SMALL BOWEL
     Route: 048
     Dates: start: 20170414
  5. SUPER B COMPLEX [Concomitant]
     Active Substance: CYANOCOBALAMIN\DEXPANTHENOL\NIACINAMIDE\PYRIDOXINE HYDROCHLORIDE\RIBOFLAVIN 5^-PHOSPHATE SODIUM\THIAMINE HYDROCHLORIDE\VITAMIN B COMPLEX
  6. POTASSIUM [Concomitant]
     Active Substance: POTASSIUM
  7. SANDOSTATIN LAR DEPOT [Concomitant]
     Active Substance: OCTREOTIDE ACETATE
  8. AFINITOR [Concomitant]
     Active Substance: EVEROLIMUS
  9. SINGULAIR [Concomitant]
     Active Substance: MONTELUKAST SODIUM
  10. MAGNESIUM [Concomitant]
     Active Substance: MAGNESIUM
  11. COQ10 [Concomitant]
     Active Substance: UBIDECARENONE
  12. VITAMIN D [Concomitant]
     Active Substance: CHOLECALCIFEROL
  13. FLAXSEED [Concomitant]
     Active Substance: FLAX SEED

REACTIONS (1)
  - Drug dose omission [Not Recovered/Not Resolved]

NARRATIVE: CASE EVENT DATE: 2017
